FAERS Safety Report 6371933-4 (Version None)
Quarter: 2009Q3

REPORT INFORMATION
  Report Type: 
  Country: None (occurrence: None)
  Receive Date: 20090923
  Receipt Date: 20090911
  Transmission Date: 20100115
  Serious: Yes (Other)
  Sender: FDA-Public Use
  Company Number: FR-ELI_LILLY_AND_COMPANY-FR200909002868

PATIENT
  Age: 34 Year
  Sex: Male

DRUGS (4)
  1. ZYPREXA [Suspect]
     Indication: SCHIZOAFFECTIVE DISORDER
     Dosage: 30 MG, DAILY (1/D)
     Route: 048
     Dates: start: 20080101, end: 20090101
  2. DEPAKOTE [Concomitant]
     Route: 048
  3. NOZINAN [Concomitant]
     Route: 048
  4. MOTILIUM [Concomitant]
     Dosage: UNK, UNK
     Route: 048

REACTIONS (2)
  - NEUTROPENIA [None]
  - OVERDOSE [None]
